FAERS Safety Report 11846502 (Version 1)
Quarter: 2015Q4

REPORT INFORMATION
  Report Type: Spontaneous
  Country: FR (occurrence: FR)
  Receive Date: 20151217
  Receipt Date: 20151217
  Transmission Date: 20160305
  Serious: Yes (Hospitalization)
  Sender: FDA-Public Use
  Company Number: FR-SA-2015SA209580

PATIENT
  Age: 80 Year
  Sex: Female

DRUGS (15)
  1. DILTIAZEM HYDROCHLORIDE. [Concomitant]
     Active Substance: DILTIAZEM HYDROCHLORIDE
     Route: 065
  2. FOLIC ACID. [Concomitant]
     Active Substance: FOLIC ACID
  3. LEVEMIR [Concomitant]
     Active Substance: INSULIN DETEMIR
  4. AUGMENTIN [Suspect]
     Active Substance: AMOXICILLIN\CLAVULANATE POTASSIUM
     Indication: ERYSIPELAS
     Route: 048
     Dates: start: 20151105, end: 20151116
  5. PRADAXA [Concomitant]
     Active Substance: DABIGATRAN ETEXILATE MESYLATE
     Route: 065
  6. BACTRIM [Concomitant]
     Active Substance: SULFAMETHOXAZOLE\TRIMETHOPRIM
     Route: 065
  7. APIDRA [Concomitant]
     Active Substance: INSULIN GLULISINE
  8. LASILIX SPECIAL [Suspect]
     Active Substance: FUROSEMIDE
     Route: 065
  9. DIFFU K [Concomitant]
     Active Substance: POTASSIUM CHLORIDE
     Route: 065
  10. LEVOTHYROX [Concomitant]
     Active Substance: LEVOTHYROXINE
  11. MOPRAL [Concomitant]
     Active Substance: OMEPRAZOLE SODIUM
     Dosage: GASTRO-RESISTANT TABLET
     Route: 065
  12. HEMIGOXINE NATIVELLE [Concomitant]
     Active Substance: DIGOXIN
  13. TAHOR [Concomitant]
     Active Substance: ATORVASTATIN CALCIUM
     Route: 065
  14. LYRICA [Concomitant]
     Active Substance: PREGABALIN
  15. DIPROSONE [Concomitant]
     Active Substance: BETAMETHASONE DIPROPIONATE
     Indication: ERYSIPELAS
     Dates: start: 20151105

REACTIONS (1)
  - Acute generalised exanthematous pustulosis [Recovered/Resolved]

NARRATIVE: CASE EVENT DATE: 20151115
